FAERS Safety Report 4912103-3 (Version None)
Quarter: 2006Q1

REPORT INFORMATION
  Report Type: 
  Country: None (occurrence: None)
  Receive Date: 20060215
  Receipt Date: 20050621
  Transmission Date: 20060701
  Serious: No
  Sender: FDA-Public Use
  Company Number: US-GLAXOSMITHKLINE-A0564139A

PATIENT
  Age: 55 Year
  Sex: Male

DRUGS (1)
  1. VALTREX [Suspect]
     Route: 048
     Dates: start: 20050315, end: 20050515

REACTIONS (1)
  - URTICARIA [None]
